FAERS Safety Report 6443924-6 (Version None)
Quarter: 2009Q4

REPORT INFORMATION
  Report Type: 
  Country: None (occurrence: None)
  Receive Date: 20091117
  Receipt Date: 20091111
  Transmission Date: 20100525
  Serious: Yes (Hospitalization)
  Sender: FDA-Public Use
  Company Number: US-GILEAD-2009-0022126

PATIENT
  Sex: Female

DRUGS (8)
  1. LETAIRIS [Suspect]
     Indication: PULMONARY ARTERIAL HYPERTENSION
     Route: 048
     Dates: start: 20090115
  2. AMLODIPINE [Concomitant]
  3. HYDRALAZINE HCL [Concomitant]
  4. ASPIRIN [Concomitant]
  5. WARFARIN SODIUM [Concomitant]
  6. FUROSEMIDE [Concomitant]
  7. ALBUTEROL [Concomitant]
  8. PRILOSEC [Concomitant]

REACTIONS (2)
  - ANAEMIA [None]
  - TRANSFUSION [None]
